FAERS Safety Report 19694724 (Version 1)
Quarter: 2021Q3

REPORT INFORMATION
  Report Type: Spontaneous
  Country: CA (occurrence: CA)
  Receive Date: 20210813
  Receipt Date: 20210813
  Transmission Date: 20211014
  Serious: Yes (Life-Threatening, Hospitalization, Other)
  Sender: FDA-Public Use
  Company Number: CA-TEVA-2021-CA-1939949

PATIENT
  Age: 42 Year
  Sex: Male

DRUGS (26)
  1. CIPROFLOXACIN. [Suspect]
     Active Substance: CIPROFLOXACIN
     Indication: CONDITION AGGRAVATED
  2. MONTELUKAST [Concomitant]
     Active Substance: MONTELUKAST SODIUM
     Indication: PRODUCT USED FOR UNKNOWN INDICATION
  3. SODIUM CHLORIDE. [Concomitant]
     Active Substance: SODIUM CHLORIDE
     Indication: PRODUCT USED FOR UNKNOWN INDICATION
  4. VITAMINS NOS [Concomitant]
     Active Substance: VITAMINS
     Indication: PRODUCT USED FOR UNKNOWN INDICATION
  5. CIPROFLOXACIN. [Suspect]
     Active Substance: CIPROFLOXACIN
     Indication: INFLUENZA LIKE ILLNESS
     Route: 048
  6. AZITHROMYCIN ANHYDROUS. [Concomitant]
     Active Substance: AZITHROMYCIN ANHYDROUS
     Indication: CYSTIC FIBROSIS
  7. BUDESONIDE. [Concomitant]
     Active Substance: BUDESONIDE
     Indication: PRODUCT USED FOR UNKNOWN INDICATION
  8. DEOXYRIBONUCLEIC ACID [Concomitant]
     Active Substance: DEOXYRIBONUCLIEC ACID
     Indication: PRODUCT USED FOR UNKNOWN INDICATION
  9. HYDROCORTISONE. [Concomitant]
     Active Substance: HYDROCORTISONE
     Indication: PRODUCT USED FOR UNKNOWN INDICATION
  10. INSULIN ISOPHANE INJECTION PORK [Concomitant]
     Indication: PRODUCT USED FOR UNKNOWN INDICATION
  11. OMALIZUMAB. [Concomitant]
     Active Substance: OMALIZUMAB
     Indication: PRODUCT USED FOR UNKNOWN INDICATION
  12. MEROPENEM. [Suspect]
     Active Substance: MEROPENEM
     Indication: INFECTIVE PULMONARY EXACERBATION OF CYSTIC FIBROSIS
     Route: 042
  13. MEROPENEM. [Suspect]
     Active Substance: MEROPENEM
     Indication: CONDITION AGGRAVATED
  14. CICLESONIDE [Concomitant]
     Active Substance: CICLESONIDE
     Indication: PRODUCT USED FOR UNKNOWN INDICATION
  15. APO?TOBRAMYCIN [Suspect]
     Active Substance: TOBRAMYCIN
     Indication: CONDITION AGGRAVATED
     Route: 048
  16. VANCOMYCIN HYDROCHLORIDE. [Suspect]
     Active Substance: VANCOMYCIN HYDROCHLORIDE
     Indication: CONDITION AGGRAVATED
  17. APO?TOBRAMYCIN [Suspect]
     Active Substance: TOBRAMYCIN
     Indication: INFLUENZA LIKE ILLNESS
     Route: 057
  18. APO?TOBRAMYCIN [Suspect]
     Active Substance: TOBRAMYCIN
     Indication: INFECTIVE PULMONARY EXACERBATION OF CYSTIC FIBROSIS
     Route: 042
  19. TAMIFLU [Suspect]
     Active Substance: OSELTAMIVIR PHOSPHATE
     Indication: INFLUENZA LIKE ILLNESS
     Route: 048
  20. TAMIFLU [Suspect]
     Active Substance: OSELTAMIVIR PHOSPHATE
     Indication: INFECTIVE PULMONARY EXACERBATION OF CYSTIC FIBROSIS
  21. BUDESONIDE;FORMOTEROL FUMARATE [Concomitant]
     Active Substance: BUDESONIDE\FORMOTEROL FUMARATE
     Indication: PRODUCT USED FOR UNKNOWN INDICATION
  22. PANCRELIPASE. [Concomitant]
     Active Substance: PANCRELIPASE
     Indication: PRODUCT USED FOR UNKNOWN INDICATION
  23. PULMOZYME [Concomitant]
     Active Substance: DORNASE ALFA
     Indication: INHALATION THERAPY
  24. CIPROFLOXACIN. [Suspect]
     Active Substance: CIPROFLOXACIN
     Indication: INFECTIVE PULMONARY EXACERBATION OF CYSTIC FIBROSIS
  25. CAYSTON [Concomitant]
     Active Substance: AZTREONAM
     Indication: ANTIBIOTIC THERAPY
  26. VANCOMYCIN HYDROCHLORIDE. [Suspect]
     Active Substance: VANCOMYCIN HYDROCHLORIDE
     Indication: INFECTIVE PULMONARY EXACERBATION OF CYSTIC FIBROSIS
     Route: 042

REACTIONS (4)
  - Staphylococcal sepsis [Not Recovered/Not Resolved]
  - Toxic epidermal necrolysis [Not Recovered/Not Resolved]
  - Sepsis [Not Recovered/Not Resolved]
  - Rash morbilliform [Not Recovered/Not Resolved]
